FAERS Safety Report 11650317 (Version 2)
Quarter: 2015Q4

REPORT INFORMATION
  Report Type: Report from Study
  Country: AU (occurrence: AU)
  Receive Date: 20151021
  Receipt Date: 20151231
  Transmission Date: 20160304
  Serious: Yes (Hospitalization, Other)
  Sender: FDA-Public Use
  Company Number: AU-UCBSA-2015032789

PATIENT
  Age: 42 Year
  Sex: Female

DRUGS (4)
  1. CERTOLIZUMAB PEGOL [Suspect]
     Active Substance: CERTOLIZUMAB PEGOL
     Dosage: 200 MG, EV 2 WEEKS(QOW)
     Route: 058
     Dates: start: 20150825, end: 20151119
  2. CERTOLIZUMAB PEGOL [Suspect]
     Active Substance: CERTOLIZUMAB PEGOL
     Indication: PSORIATIC ARTHROPATHY
     Dosage: 400 MG, EV 2 WEEKS (LOADING DOSE, 0, 2, 4 WEEKS)
     Route: 058
     Dates: start: 20150715, end: 20150811
  3. CEFALEXIN [Concomitant]
     Active Substance: CEPHALEXIN
     Dosage: 500 MG, 4X/DAY (QID)
     Route: 048
     Dates: start: 20151210
  4. CEFALEXIN [Concomitant]
     Active Substance: CEPHALEXIN
     Indication: LOCALISED INFECTION
     Dosage: 500 MG, ONCE DAILY (QD)
     Route: 048
     Dates: start: 201510, end: 20151014

REACTIONS (7)
  - Fungal skin infection [Recovering/Resolving]
  - Psoriasis [Not Recovered/Not Resolved]
  - Localised infection [Recovering/Resolving]
  - Staphylococcal infection [Recovering/Resolving]
  - Pain in extremity [Not Recovered/Not Resolved]
  - Nausea [Recovered/Resolved]
  - Abdominal pain [Recovered/Resolved]

NARRATIVE: CASE EVENT DATE: 20151007
